FAERS Safety Report 21345118 (Version 2)
Quarter: 2022Q3

REPORT INFORMATION
  Report Type: Spontaneous
  Country: US (occurrence: US)
  Receive Date: 20220916
  Receipt Date: 20220920
  Transmission Date: 20221027
  Serious: Yes (Other)
  Sender: FDA-Public Use
  Company Number: US-PFIZER INC-202201162743

PATIENT
  Age: 70 Year
  Sex: Female

DRUGS (1)
  1. HEPARIN SODIUM [Suspect]
     Active Substance: HEPARIN SODIUM
     Dosage: UNK, (25,000 UNITS PER 250ML HALF NORMAL SALINE )
     Route: 041
     Dates: start: 20220201

REACTIONS (2)
  - Cytopenia [Unknown]
  - Thrombocytopenia [Unknown]
